FAERS Safety Report 21205842 (Version 1)
Quarter: 2022Q3

REPORT INFORMATION
  Report Type: Spontaneous
  Country: FR (occurrence: FR)
  Receive Date: 20220812
  Receipt Date: 20220812
  Transmission Date: 20221027
  Serious: Yes (Death, Other)
  Sender: FDA-Public Use
  Company Number: FR-ASPEN-GLO2022FR004618

PATIENT

DRUGS (2)
  1. BUSULFAN [Suspect]
     Active Substance: BUSULFAN
     Indication: Ewing^s sarcoma
     Dosage: UNK
     Route: 065
  2. MELPHALAN [Suspect]
     Active Substance: MELPHALAN
     Indication: Ewing^s sarcoma
     Dosage: UNK
     Route: 065

REACTIONS (2)
  - Off label use [Fatal]
  - Pulmonary toxicity [Fatal]
